FAERS Safety Report 6282779-X (Version None)
Quarter: 2009Q3

REPORT INFORMATION
  Report Type: 
  Country: None (occurrence: None)
  Receive Date: 20090724
  Receipt Date: 20090713
  Transmission Date: 20100115
  Serious: Yes (Other)
  Sender: FDA-Public Use
  Company Number: CA-PFIZER INC-2009229647

PATIENT
  Age: 55 Year

DRUGS (12)
  1. ZELDOX [Suspect]
     Indication: MAJOR DEPRESSION
     Dosage: TOTAL DAILY DOSE: 120 MG
     Route: 048
     Dates: start: 20090415
  2. SEROQUEL [Concomitant]
     Dosage: 25 MG, UNK
  3. METHYLPHENIDATE [Concomitant]
     Indication: DEPRESSION
     Dosage: 20 MG, 1X/DAY
  4. METHYLPHENIDATE - SLOW RELEASE [Concomitant]
     Indication: DEPRESSION
     Dosage: 20 MG, 1X/DAY
  5. ZOPICLONE [Concomitant]
     Dosage: 7.5 MG, UNK
  6. WELLBUTRIN XL [Concomitant]
     Indication: DEPRESSION
     Dosage: 300 MG, 1X/DAY
  7. VALSARTAN [Concomitant]
     Indication: HYPERTENSION
     Dosage: 160 MG, 1X/DAY
  8. SPIRONOLACTONE [Concomitant]
     Dosage: 25 MG, UNK
  9. CALCIUM WITH VITAMIN D [Concomitant]
     Dosage: 500 MG, UNK
  10. DOCUSATE CALCIUM [Concomitant]
     Dosage: 480 MG, UNK
  11. NORVASC [Concomitant]
     Indication: HYPERTENSION
     Dosage: 10 MG, 1X/DAY
  12. FLUOXETINE [Concomitant]
     Dosage: 20 MG ELIXIR

REACTIONS (2)
  - HYPOAESTHESIA [None]
  - PAIN IN EXTREMITY [None]
